FAERS Safety Report 10018880 (Version 9)
Quarter: 2018Q4

REPORT INFORMATION
  Report Type: Spontaneous
  Country: US (occurrence: US)
  Receive Date: 20140318
  Receipt Date: 20181218
  Transmission Date: 20190204
  Serious: Yes (Hospitalization, Other)
  Sender: FDA-Public Use
  Company Number: US-009507513-1403USA004500

PATIENT
  Sex: Female

DRUGS (3)
  1. PROTONIX [Concomitant]
     Active Substance: PANTOPRAZOLE SODIUM
     Indication: GASTRITIS
     Dosage: UNK
     Route: 065
     Dates: start: 1991
  2. FOSAMAX [Suspect]
     Active Substance: ALENDRONATE SODIUM
     Indication: OSTEOPOROSIS
     Dosage: 70 MG, WEEKLY
     Route: 048
     Dates: start: 200301, end: 200802
  3. ALENDRONATE SODIUM. [Suspect]
     Active Substance: ALENDRONATE SODIUM
     Indication: OSTEOPOROSIS
     Dosage: 70 MG, QW
     Route: 048
     Dates: start: 200802, end: 201211

REACTIONS (19)
  - Oral surgery [Unknown]
  - Ear operation [Unknown]
  - Pain in extremity [Unknown]
  - Complication associated with device [Unknown]
  - Hip arthroplasty [Unknown]
  - Nausea [Unknown]
  - Cholecystectomy [Unknown]
  - Haemorrhagic anaemia [Unknown]
  - Vomiting [Unknown]
  - Hip fracture [Unknown]
  - Back pain [Unknown]
  - Impaired healing [Unknown]
  - Fall [Unknown]
  - Hip arthroplasty [Unknown]
  - Femur fracture [Recovering/Resolving]
  - Arthritis [Unknown]
  - Adverse drug reaction [Unknown]
  - Bursitis [Unknown]
  - Gastrooesophageal reflux disease [Unknown]

NARRATIVE: CASE EVENT DATE: 2003
